FAERS Safety Report 9255877 (Version 1)
Quarter: 2013Q2

REPORT INFORMATION
  Report Type: Spontaneous
  Country: US (occurrence: US)
  Receive Date: 20130425
  Receipt Date: 20130425
  Transmission Date: 20140414
  Serious: No
  Sender: FDA-Public Use
  Company Number: US-ASTRAZENECA-2013SE24570

PATIENT
  Age: 58 Year
  Sex: Female
  Weight: 69.9 kg

DRUGS (17)
  1. SYMBICORT PMDI [Suspect]
     Indication: ASTHMA
     Route: 055
     Dates: start: 2009
  2. CRESTOR [Suspect]
     Indication: BLOOD CHOLESTEROL INCREASED
     Route: 048
     Dates: start: 201302
  3. ACCOLATE [Suspect]
     Indication: ASTHMA
     Route: 048
     Dates: start: 201302
  4. ZOMIG [Suspect]
     Indication: MIGRAINE
     Route: 048
     Dates: start: 2008, end: 2011
  5. ZOMIG [Suspect]
     Indication: MIGRAINE
     Route: 048
     Dates: start: 2008
  6. ASPIRIN [Concomitant]
     Indication: ANTICOAGULANT THERAPY
  7. TRAZODONE [Concomitant]
     Indication: SLEEP DISORDER
  8. SIMVASTATIN [Concomitant]
     Indication: BLOOD CHOLESTEROL ABNORMAL
  9. SINGULAIR [Concomitant]
     Indication: ASTHMA
  10. NORCO [Concomitant]
     Indication: PAIN
  11. XANAX [Concomitant]
     Indication: ANXIETY
  12. VALIUM [Concomitant]
     Indication: MUSCLE SPASMS
  13. VALIUM [Concomitant]
     Indication: NERVOUSNESS
  14. CELEXA [Concomitant]
     Indication: DEPRESSION
  15. SYNTHROID [Concomitant]
     Indication: THYROID DISORDER
  16. PROVENTIL HFA [Concomitant]
     Indication: ASTHMA
  17. SYMTANS [Concomitant]

REACTIONS (3)
  - Migraine [Not Recovered/Not Resolved]
  - Osteoporosis [Not Recovered/Not Resolved]
  - Intentional drug misuse [Unknown]
